FAERS Safety Report 6101471-5 (Version None)
Quarter: 2009Q1

REPORT INFORMATION
  Report Type: 
  Country: None (occurrence: None)
  Receive Date: 20090303
  Receipt Date: 20090303
  Transmission Date: 20090719
  Serious: Yes (Death)
  Sender: FDA-Public Use
  Company Number: None

PATIENT
  Age: 30 Year
  Sex: Male
  Weight: 113.3993 kg

DRUGS (2)
  1. METHADONE HCL [Suspect]
     Indication: DRUG WITHDRAWAL SYNDROME
     Dosage: 40 ONE DOSE PO 160 ONE DOSE PO
     Route: 048
     Dates: start: 20081202, end: 20081202
  2. METHADONE HCL [Suspect]
     Indication: DRUG WITHDRAWAL SYNDROME
     Dosage: 40 ONE DOSE PO 160 ONE DOSE PO
     Route: 048
     Dates: start: 20081203, end: 20081203

REACTIONS (4)
  - COMA [None]
  - MALAISE [None]
  - MEDICATION ERROR [None]
  - RESPIRATORY RATE DECREASED [None]
